FAERS Safety Report 8343313-3 (Version None)
Quarter: 2012Q2

REPORT INFORMATION
  Report Type: 
  Country: None (occurrence: None)
  Receive Date: 20120508
  Receipt Date: 20120501
  Transmission Date: 20120825
  Serious: Yes (Other)
  Sender: FDA-Public Use
  Company Number: PHHY2011CA100818

PATIENT
  Sex: Female

DRUGS (2)
  1. SANDOSTATIN LAR [Suspect]
     Indication: OVARIAN NEOPLASM
     Dosage: 20 MG, ONCE A MONTH
     Route: 030
     Dates: start: 20111012
  2. LASIX [Concomitant]
     Dosage: 40 MG, UNK

REACTIONS (8)
  - ASCITES [None]
  - ABDOMINAL DISTENSION [None]
  - GAIT DISTURBANCE [None]
  - GENERAL PHYSICAL HEALTH DETERIORATION [None]
  - OEDEMA PERIPHERAL [None]
  - METASTASIS [None]
  - BOWEL MOVEMENT IRREGULARITY [None]
  - DYSPNOEA EXERTIONAL [None]
